FAERS Safety Report 9960284 (Version 1)
Quarter: 2014Q1

REPORT INFORMATION
  Report Type: Report from Study
  Country: US (occurrence: US)
  Receive Date: 20140305
  Receipt Date: 20140305
  Transmission Date: 20141002
  Serious: No
  Sender: FDA-Public Use
  Company Number: US-ABBVIE-13P-163-1103280-00

PATIENT
  Age: 33 Year
  Sex: Male

DRUGS (2)
  1. HUMIRA [Suspect]
     Indication: CROHN^S DISEASE
     Dates: start: 20130429
  2. METHOTREXATE [Concomitant]
     Indication: CROHN^S DISEASE

REACTIONS (2)
  - Wound [Recovering/Resolving]
  - Wound drainage [Recovering/Resolving]
